FAERS Safety Report 5223027-9 (Version None)
Quarter: 2007Q1

REPORT INFORMATION
  Report Type: 
  Country: None (occurrence: None)
  Receive Date: 20070129
  Receipt Date: 20070119
  Transmission Date: 20070707
  Serious: Yes (Other)
  Sender: FDA-Public Use
  Company Number: NL-PFIZER INC-2006154261

PATIENT
  Sex: Male
  Weight: 147 kg

DRUGS (2)
  1. LIPITOR [Suspect]
     Route: 048
  2. RITALIN [Concomitant]
     Route: 048

REACTIONS (5)
  - BLOOD CREATINE PHOSPHOKINASE INCREASED [None]
  - LOWER RESPIRATORY TRACT INFECTION [None]
  - MUSCLE SPASMS [None]
  - RHABDOMYOLYSIS [None]
  - SENSORY LOSS [None]
